FAERS Safety Report 22193883 (Version 2)
Quarter: 2023Q2

REPORT INFORMATION
  Report Type: Spontaneous
  Country: NL (occurrence: NL)
  Receive Date: 20230410
  Receipt Date: 20230508
  Transmission Date: 20230721
  Serious: Yes (Hospitalization, Other)
  Sender: FDA-Public Use
  Company Number: NL-CELLTRION INC.-2023NL006823

PATIENT

DRUGS (14)
  1. RITUXIMAB [Suspect]
     Active Substance: RITUXIMAB
     Indication: Diffuse large B-cell lymphoma
     Dosage: 2ND CYCLY STARTING ON DAY 1
  2. RITUXIMAB [Suspect]
     Active Substance: RITUXIMAB
     Dosage: STARTING ON DAY 5 FOR 100%
  3. PREDNISONE [Suspect]
     Active Substance: PREDNISONE
     Indication: Diffuse large B-cell lymphoma
     Dosage: 100 MG, DAILY
  4. PREDNISONE [Suspect]
     Active Substance: PREDNISONE
     Dosage: 2ND CYCLY STARTING ON DAY 2
  5. DOXORUBICIN [Suspect]
     Active Substance: DOXORUBICIN
     Indication: Diffuse large B-cell lymphoma
     Dosage: 2ND CYCLY STARTING ON DAY 2
  6. DOXORUBICIN [Suspect]
     Active Substance: DOXORUBICIN
     Dosage: STARTING ON DAY 7 FOR 75%
  7. DIGOXIN [Suspect]
     Active Substance: DIGOXIN
     Indication: Product used for unknown indication
     Dosage: UNK
  8. CYCLOPHOSPHAMIDE [Suspect]
     Active Substance: CYCLOPHOSPHAMIDE
     Indication: Diffuse large B-cell lymphoma
     Dosage: STARTING ON DAY 6 FOR 75%
  9. CYCLOPHOSPHAMIDE [Suspect]
     Active Substance: CYCLOPHOSPHAMIDE
     Dosage: 2ND CYCLY STARTING ON DAY 2
  10. VINCRISTINE [Suspect]
     Active Substance: VINCRISTINE
     Indication: Diffuse large B-cell lymphoma
     Dosage: 2ND CYCLY STARTING ON DAY 2
  11. VINCRISTINE [Suspect]
     Active Substance: VINCRISTINE
     Dosage: STARTING ON DAY 5 FOR 75%
  12. RIVAROXABAN [Concomitant]
     Active Substance: RIVAROXABAN
  13. FUROSEMIDE [Concomitant]
     Active Substance: FUROSEMIDE
     Indication: Cardiac failure
     Dosage: LOWDOSAGE
  14. TINZAPARIN [Concomitant]
     Active Substance: TINZAPARIN

REACTIONS (3)
  - Pericardial effusion [Recovered/Resolved]
  - Ventricular tachycardia [Recovered/Resolved]
  - Chest pain [Recovered/Resolved]
